FAERS Safety Report 14154390 (Version 1)
Quarter: 2017Q4

REPORT INFORMATION
  Report Type: Report from Study
  Country: None (occurrence: US)
  Receive Date: 20171102
  Receipt Date: 20171102
  Transmission Date: 20180321
  Serious: Yes (Other)
  Sender: FDA-Public Use
  Company Number: US-ABBVIE-17P-163-2150368-00

PATIENT
  Age: 60 Year
  Sex: Female

DRUGS (13)
  1. METAMUCIL [Concomitant]
     Active Substance: PLANTAGO SEED
     Indication: COLITIS ULCERATIVE
     Dosage: 1 PACKET DAILY
     Route: 048
     Dates: start: 1994
  2. HUMIRA [Suspect]
     Active Substance: ADALIMUMAB
     Indication: COLITIS ULCERATIVE
     Route: 058
     Dates: start: 20100312, end: 20150330
  3. PREDNISONE. [Concomitant]
     Active Substance: PREDNISONE
     Dosage: HIGHEST MAINTAINED DOSE: 40MG; TAPERED OFF
     Route: 048
     Dates: start: 20121025, end: 201212
  4. PREDNISONE. [Concomitant]
     Active Substance: PREDNISONE
     Dosage: HIGHEST MAINTAINED DOSE: 40MG; TAPERED OFF
     Route: 048
     Dates: start: 201101, end: 201101
  5. PREDNISONE. [Concomitant]
     Active Substance: PREDNISONE
     Indication: COLITIS ULCERATIVE
     Dosage: HIGHEST MAINTAINED DOSE: 40MG; TAPERED OFF
     Route: 048
     Dates: start: 20120803, end: 20120815
  6. PREDNISONE. [Concomitant]
     Active Substance: PREDNISONE
     Dosage: HIGHEST MAINTAINED DOSE: 40MG; TAPERED OFF
     Route: 048
     Dates: start: 20150403, end: 201505
  7. BUDESONIDE. [Concomitant]
     Active Substance: BUDESONIDE
     Indication: COLITIS ULCERATIVE
     Route: 048
     Dates: start: 20020429
  8. PRILOSEC [Concomitant]
     Active Substance: OMEPRAZOLE MAGNESIUM
     Indication: GASTROOESOPHAGEAL REFLUX DISEASE
     Route: 048
     Dates: start: 2005
  9. HUMIRA [Suspect]
     Active Substance: ADALIMUMAB
     Route: 058
     Dates: start: 20151020
  10. SYNTHROID [Concomitant]
     Active Substance: LEVOTHYROXINE SODIUM
     Indication: HORMONE REPLACEMENT THERAPY
     Route: 048
     Dates: start: 20131102
  11. HUMIRA [Suspect]
     Active Substance: ADALIMUMAB
     Route: 058
     Dates: start: 20150330, end: 20151020
  12. PREDNISONE. [Concomitant]
     Active Substance: PREDNISONE
     Dosage: HIGHEST MAINTAINED DOSE: 40MG; TAPERED OFF
     Route: 048
     Dates: start: 20100212, end: 20100429
  13. LORAZEPAM. [Concomitant]
     Active Substance: LORAZEPAM
     Indication: SLEEP DISORDER THERAPY
     Route: 048
     Dates: start: 20150403

REACTIONS (1)
  - Dizziness [Recovered/Resolved]

NARRATIVE: CASE EVENT DATE: 20170304
